FAERS Safety Report 24013251 (Version 5)
Quarter: 2025Q1

REPORT INFORMATION
  Report Type: Report from Study
  Country: CO (occurrence: CO)
  Receive Date: 20240626
  Receipt Date: 20250123
  Transmission Date: 20250408
  Serious: Yes (Hospitalization, Other)
  Sender: BIOGEN
  Company Number: CO-BIOGEN-2024BI01270813

PATIENT
  Age: 2 Year
  Sex: Female
  Weight: 8.9 kg

DRUGS (3)
  1. SPINRAZA [Suspect]
     Active Substance: NUSINERSEN
     Indication: Spinal muscular atrophy
     Route: 050
     Dates: end: 20240221
  2. SPINRAZA [Suspect]
     Active Substance: NUSINERSEN
     Route: 050
  3. ATROPINE [Suspect]
     Active Substance: ATROPINE
     Indication: Product used for unknown indication
     Route: 050

REACTIONS (15)
  - Respiratory failure [Recovered/Resolved]
  - Pneumonia influenzal [Recovered/Resolved]
  - Lactose intolerance [Recovered/Resolved]
  - Malnutrition [Not Recovered/Not Resolved]
  - Viraemia [Recovered/Resolved]
  - Atelectasis [Not Recovered/Not Resolved]
  - Enterobacter infection [Recovered/Resolved]
  - Rhinovirus infection [Recovered/Resolved]
  - Enterobiasis [Recovered/Resolved]
  - Pathogen resistance [Recovered/Resolved]
  - Dry mouth [Recovered/Resolved]
  - Pharyngitis bacterial [Recovered/Resolved]
  - Dysphagia [Not Recovered/Not Resolved]
  - Underweight [Not Recovered/Not Resolved]
  - Sleep apnoea syndrome [Not Recovered/Not Resolved]

NARRATIVE: CASE EVENT DATE: 20240101
